FAERS Safety Report 5662546-8 (Version None)
Quarter: 2008Q1

REPORT INFORMATION
  Report Type: 
  Country: None (occurrence: None)
  Receive Date: 20080310
  Receipt Date: 20080310
  Transmission Date: 20080703
  Serious: No
  Sender: FDA-Public Use
  Company Number: None

PATIENT
  Sex: Female
  Weight: 104.7809 kg

DRUGS (6)
  1. VARENICLINE 1 MG PFIZER [Suspect]
     Indication: SMOKING CESSATION THERAPY
     Dosage: 1 MG TWICE DAILY PO
     Route: 048
     Dates: start: 20071120, end: 20071220
  2. GLIPIZIDE [Concomitant]
  3. AVANDAMET [Concomitant]
  4. LEXAPRO [Concomitant]
  5. LISINOPRIL [Concomitant]
  6. NABUMETONE [Concomitant]

REACTIONS (1)
  - RASH [None]
